FAERS Safety Report 9249490 (Version 2)
Quarter: 2013Q2

REPORT INFORMATION
  Report Type: Spontaneous
  Country: AT (occurrence: AT)
  Receive Date: 20130423
  Receipt Date: 20130516
  Transmission Date: 20140414
  Serious: Yes (Hospitalization)
  Sender: FDA-Public Use
  Company Number: AT-ABBOTT-13P-009-1077365-00

PATIENT
  Sex: Female
  Weight: 65 kg

DRUGS (6)
  1. HUMIRA [Suspect]
     Indication: RHEUMATOID ARTHRITIS
     Dates: start: 2006, end: 201304
  2. EUTHYROX [Concomitant]
     Indication: AUTOIMMUNE THYROIDITIS
     Route: 048
  3. CALCIUM + VITAMIN D3 [Concomitant]
     Indication: OSTEOPENIA
     Dosage: 1000/4000
     Route: 048
  4. MOVALIS [Concomitant]
     Indication: ARTHRALGIA
     Route: 048
  5. MOVALIS [Concomitant]
     Indication: RHEUMATOID ARTHRITIS
  6. ARAVA [Concomitant]
     Indication: RHEUMATOID ARTHRITIS
     Route: 048
     Dates: start: 2006

REACTIONS (2)
  - Sarcoidosis [Not Recovered/Not Resolved]
  - Tuberculosis [Unknown]
